FAERS Safety Report 10029589 (Version 1)
Quarter: 2014Q1

REPORT INFORMATION
  Report Type: Spontaneous
  Country: US (occurrence: None)
  Receive Date: 20140320
  Receipt Date: 20140320
  Transmission Date: 20141002
  Serious: Yes (Life-Threatening, Hospitalization)
  Sender: FDA-Public Use
  Company Number: None

PATIENT
  Age: 86 Year
  Sex: Male
  Weight: 74 kg

DRUGS (1)
  1. PRADAXA [Suspect]
     Dosage: 1 TAB
     Route: 048

REACTIONS (1)
  - Subdural haemorrhage [None]
